FAERS Safety Report 7267223-8 (Version None)
Quarter: 2011Q1

REPORT INFORMATION
  Report Type: 
  Country: None (occurrence: None)
  Receive Date: 20110201
  Receipt Date: 20101001
  Transmission Date: 20110831
  Serious: Yes (Hospitalization)
  Sender: FDA-Public Use
  Company Number: US-BAYER-201034820NA

PATIENT
  Sex: Female
  Weight: 68.027 kg

DRUGS (6)
  1. YASMIN [Suspect]
     Indication: ACNE
  2. EFFEXOR [Concomitant]
     Indication: ANXIETY
     Dosage: UNK
     Dates: start: 20030701
  3. MELATONIN [Concomitant]
     Indication: SLEEP DISORDER
     Dosage: 2 MG, QD
     Dates: start: 20080101
  4. PROMETHAZINE [Concomitant]
     Dosage: 25 MG, UNK
     Dates: start: 20080913
  5. YAZ [Suspect]
     Indication: ACNE
     Dosage: UNK
     Dates: start: 20080501, end: 20091201
  6. ADVAIR [Concomitant]
     Indication: ASTHMA
     Dosage: UNK UNK, QD
     Dates: start: 20030701

REACTIONS (7)
  - CHOLECYSTITIS CHRONIC [None]
  - NAUSEA [None]
  - CHOLECYSTITIS ACUTE [None]
  - ABDOMINAL PAIN UPPER [None]
  - ABDOMINAL PAIN [None]
  - DIARRHOEA [None]
  - CHOLELITHIASIS [None]
